FAERS Safety Report 10026759 (Version 1)
Quarter: 2014Q1

REPORT INFORMATION
  Report Type: Spontaneous
  Country: GB (occurrence: None)
  Receive Date: 20140318
  Receipt Date: 20140318
  Transmission Date: 20141002
  Serious: Yes (Hospitalization, Disabling)
  Sender: FDA-Public Use
  Company Number: 2233007

PATIENT
  Age: 63 Year
  Sex: Female

DRUGS (5)
  1. METHOTREXATE [Suspect]
     Indication: RHEUMATOID ARTHRITIS
     Dosage: .171 DAYS.
     Route: 030
     Dates: start: 20130816, end: 20140203
  2. OMEPRAZOLE [Suspect]
     Indication: GASTROOESOPHAGEAL REFLUX DISEASE
     Route: 048
     Dates: start: 20101129, end: 201312
  3. AMLODIPINE [Concomitant]
  4. CALCIUM CARBONATE W/CHOLECALCIFEROL/SODIUM [Concomitant]
  5. FOLIC ACID [Concomitant]

REACTIONS (2)
  - Drug interaction [None]
  - Hypomagnesaemia [None]
